FAERS Safety Report 18048609 (Version 1)
Quarter: 2020Q3

REPORT INFORMATION
  Report Type: Spontaneous
  Country: US (occurrence: US)
  Receive Date: 20200720
  Receipt Date: 20200720
  Transmission Date: 20201103
  Serious: No
  Sender: FDA-Public Use
  Company Number: None

PATIENT
  Sex: Female

DRUGS (2)
  1. VERZENIO [Suspect]
     Active Substance: ABEMACICLIB
     Indication: BREAST CANCER FEMALE
     Route: 048
     Dates: start: 20200326
  2. VERZENIO [Suspect]
     Active Substance: ABEMACICLIB
     Indication: METASTASES TO BONE
     Route: 048
     Dates: start: 20200326

REACTIONS (1)
  - Adverse drug reaction [None]
